FAERS Safety Report 4777411-8 (Version None)
Quarter: 2005Q3

REPORT INFORMATION
  Report Type: 
  Country: None (occurrence: None)
  Receive Date: 20050915
  Receipt Date: 20050902
  Transmission Date: 20060218
  Serious: Yes (Other)
  Sender: FDA-Public Use
  Company Number: 215886

PATIENT
  Age: 48 Year
  Sex: Male

DRUGS (1)
  1. RITUXAN [Suspect]
     Indication: WALDENSTROM'S MACROGLOBULINAEMIA

REACTIONS (7)
  - ARTHRITIS [None]
  - BONE PAIN [None]
  - CONDITION AGGRAVATED [None]
  - ERYTHEMA [None]
  - HYPOKINESIA [None]
  - RHEUMATOID ARTHRITIS [None]
  - SWELLING [None]
